FAERS Safety Report 13406333 (Version 2)
Quarter: 2017Q2

REPORT INFORMATION
  Report Type: Spontaneous
  Country: US (occurrence: US)
  Receive Date: 20170405
  Receipt Date: 20170417
  Transmission Date: 20170830
  Serious: No
  Sender: FDA-Public Use
  Company Number: US-JNJFOC-20170324698

PATIENT
  Age: 34 Year
  Sex: Male
  Weight: 71.67 kg

DRUGS (2)
  1. ZYRTEC 10MG IR TABLET [Suspect]
     Active Substance: CETIRIZINE HYDROCHLORIDE
     Route: 048
  2. ZYRTEC 10MG IR TABLET [Suspect]
     Active Substance: CETIRIZINE HYDROCHLORIDE
     Indication: SEASONAL ALLERGY
     Dosage: 1-2 TABLETS
     Route: 048
     Dates: end: 20170330

REACTIONS (2)
  - Incorrect dose administered [Not Recovered/Not Resolved]
  - Epistaxis [Not Recovered/Not Resolved]
